FAERS Safety Report 5584287-8 (Version None)
Quarter: 2008Q1

REPORT INFORMATION
  Report Type: 
  Country: None (occurrence: None)
  Receive Date: 20080108
  Receipt Date: 20080104
  Transmission Date: 20080703
  Serious: Yes (Life-Threatening)
  Sender: FDA-Public Use
  Company Number: B0501602A

PATIENT
  Age: 68 Year
  Sex: Male
  Weight: 80 kg

DRUGS (9)
  1. ROSIGLITAZONE [Suspect]
     Indication: DIABETES MELLITUS
     Route: 048
     Dates: start: 20070725, end: 20071212
  2. AMLODIPINE [Concomitant]
     Indication: HYPERTENSION
     Dosage: 10MG PER DAY
     Route: 048
     Dates: start: 20040928
  3. ASPIRIN [Concomitant]
     Indication: PROPHYLAXIS
     Dosage: 75MG PER DAY
     Route: 048
     Dates: start: 20040414
  4. ATENOLOL [Concomitant]
     Indication: ANGINA PECTORIS
     Dosage: 50MG PER DAY
     Route: 048
     Dates: start: 19910101
  5. GLICLAZIDE [Concomitant]
     Indication: DIABETES MELLITUS
     Dosage: 320MG PER DAY
     Route: 048
     Dates: start: 20050202
  6. METFORMIN HCL [Concomitant]
     Indication: DIABETES MELLITUS
     Dosage: 2550MG PER DAY
     Route: 048
     Dates: start: 20030903
  7. RAMIPRIL [Concomitant]
     Indication: HYPERTENSION
     Dosage: 10MG PER DAY
     Route: 048
     Dates: start: 20040317
  8. SIMVASTATIN [Concomitant]
     Indication: HYPERCHOLESTEROLAEMIA
     Dosage: 40MG PER DAY
     Route: 048
     Dates: start: 20050914
  9. GTN-S [Concomitant]
     Indication: ANGINA PECTORIS
     Route: 002
     Dates: start: 19920101

REACTIONS (1)
  - ACUTE MYOCARDIAL INFARCTION [None]
